FAERS Safety Report 16750655 (Version 1)
Quarter: 2019Q3

REPORT INFORMATION
  Report Type: Spontaneous
  Country: US (occurrence: US)
  Receive Date: 20190828
  Receipt Date: 20190828
  Transmission Date: 20191005
  Serious: Yes (Other)
  Sender: FDA-Public Use
  Company Number: US-HIKMA PHARMACEUTICALS USA INC.-US-H14001-19-04693

PATIENT
  Sex: Male

DRUGS (3)
  1. POTASSIUM PHOSPHATE [Concomitant]
     Active Substance: POTASSIUM PHOSPHATE
     Indication: HYPOPHOSPHATAEMIC OSTEOMALACIA
     Route: 065
  2. SODIUM [Concomitant]
     Active Substance: SODIUM
     Indication: HYPOPHOSPHATAEMIC OSTEOMALACIA
     Route: 048
  3. CALCITRIOL. [Suspect]
     Active Substance: CALCITRIOL
     Indication: HYPOPHOSPHATAEMIC OSTEOMALACIA
     Route: 065

REACTIONS (2)
  - Nephrolithiasis [Recovering/Resolving]
  - Nephrocalcinosis [Recovering/Resolving]
